FAERS Safety Report 15136644 (Version 1)
Quarter: 2018Q3

REPORT INFORMATION
  Report Type: Report from Study
  Country: HU (occurrence: HU)
  Receive Date: 20180712
  Receipt Date: 20180712
  Transmission Date: 20181010
  Serious: Yes (Other)
  Sender: FDA-Public Use
  Company Number: HU-MYLANLABS-2018M1050677

PATIENT
  Age: 77 Year
  Sex: Female

DRUGS (1)
  1. WARFARIN [Suspect]
     Active Substance: WARFARIN
     Indication: HYPERTENSION
     Route: 065

REACTIONS (2)
  - Blindness [Not Recovered/Not Resolved]
  - Choroidal haemorrhage [Unknown]

NARRATIVE: CASE EVENT DATE: 2016
